FAERS Safety Report 5572812-2 (Version None)
Quarter: 2007Q4

REPORT INFORMATION
  Report Type: 
  Country: None (occurrence: None)
  Receive Date: 20071223
  Receipt Date: 20071217
  Transmission Date: 20080405
  Serious: Yes (Other)
  Sender: FDA-Public Use
  Company Number: PHBS2007BR21013

PATIENT
  Age: 34 Year
  Sex: Female

DRUGS (1)
  1. TEGRETOL [Suspect]
     Dosage: 600 MG, ONCE/SINGLE
     Route: 048
     Dates: start: 20071216, end: 20071216

REACTIONS (1)
  - SUICIDE ATTEMPT [None]
